FAERS Safety Report 6553571-3 (Version None)
Quarter: 2010Q1

REPORT INFORMATION
  Report Type: 
  Country: None (occurrence: None)
  Receive Date: 20100127
  Receipt Date: 20100119
  Transmission Date: 20100710
  Serious: Yes (Other)
  Sender: FDA-Public Use
  Company Number: US-SANOFI-AVENTIS-2010SA003473

PATIENT
  Age: 67 Year
  Sex: Female

DRUGS (1)
  1. MULTAQ [Suspect]
     Indication: ATRIAL FIBRILLATION
     Route: 048
     Dates: start: 20091203, end: 20100119

REACTIONS (3)
  - BENIGN FAMILIAL PEMPHIGUS [None]
  - CONDITION AGGRAVATED [None]
  - ELECTROCARDIOGRAM QT PROLONGED [None]
